FAERS Safety Report 6587712-9 (Version None)
Quarter: 2010Q1

REPORT INFORMATION
  Report Type: 
  Country: None (occurrence: None)
  Receive Date: 20100218
  Receipt Date: 20091104
  Transmission Date: 20100710
  Serious: No
  Sender: FDA-Public Use
  Company Number: A0815046A

PATIENT
  Age: 58 Year
  Sex: Female

DRUGS (6)
  1. COREG CR [Suspect]
     Dosage: 20MG PER DAY
     Route: 048
     Dates: start: 20091103
  2. ESTROPLUS [Concomitant]
  3. LEVOTHYROXINE SODIUM [Concomitant]
  4. HYDROCODONE [Concomitant]
  5. CARBIDOPA-LEVODOPA [Concomitant]
  6. DYAZIDE [Concomitant]

REACTIONS (1)
  - FATIGUE [None]
